FAERS Safety Report 21255298 (Version 1)
Quarter: 2022Q3

REPORT INFORMATION
  Report Type: Spontaneous
  Country: DE (occurrence: DE)
  Receive Date: 20220825
  Receipt Date: 20220825
  Transmission Date: 20221027
  Serious: Yes (Other)
  Sender: FDA-Public Use
  Company Number: DE-PFIZER INC-202200899388

PATIENT
  Age: 45 Year
  Sex: Female
  Weight: 46 kg

DRUGS (7)
  1. TAMOXIFEN [Interacting]
     Active Substance: TAMOXIFEN
     Indication: Breast cancer
     Dosage: 20 MILLIGRAM, QD, 20 MG, 1X/DAY
     Route: 065
     Dates: start: 201512
  2. AZULFIDINE [Interacting]
     Active Substance: SULFASALAZINE
     Indication: Rheumatoid arthritis
     Dosage: UNK DOSAGE FORM
     Route: 065
     Dates: end: 202201
  3. AZULFIDINE [Interacting]
     Active Substance: SULFASALAZINE
     Dosage: 2 DOSAGE FORM
     Route: 065
     Dates: start: 20210903
  4. AZULFIDINE [Interacting]
     Active Substance: SULFASALAZINE
     Dosage: 2 DF
     Route: 065
     Dates: start: 20210902
  5. AZULFIDINE [Interacting]
     Active Substance: SULFASALAZINE
     Dosage: 3 DF
     Route: 065
     Dates: start: 202112
  6. EUTHYROX [Concomitant]
     Active Substance: LEVOTHYROXINE SODIUM
     Indication: Autoimmune thyroiditis
     Dosage: UNK UNK, QD
     Route: 065
     Dates: start: 1996
  7. PREDNISOLONE [Concomitant]
     Active Substance: PREDNISOLONE
     Indication: Rheumatoid arthritis
     Dosage: 5 MG OR 4 MG, 1X/DAY
     Route: 065
     Dates: start: 202003

REACTIONS (5)
  - Drug interaction [Unknown]
  - Circulatory collapse [Recovered/Resolved]
  - Leukopenia [Recovered/Resolved]
  - Depression [Recovered/Resolved]
  - Product label confusion [Unknown]

NARRATIVE: CASE EVENT DATE: 20210902
